FAERS Safety Report 4633026-3 (Version None)
Quarter: 2005Q2

REPORT INFORMATION
  Report Type: 
  Country: None (occurrence: None)
  Receive Date: 20050325
  Receipt Date: 20041230
  Transmission Date: 20051028
  Serious: No
  Sender: FDA-Public Use
  Company Number: USA031051171

PATIENT
  Age: 66 Year
  Sex: Female

DRUGS (6)
  1. FORTEO [Suspect]
     Indication: OSTEOPOROSIS
  2. CALCIUM CARBONATE [Concomitant]
  3. ESTROGENS CONJUGATED [Concomitant]
  4. AMITRIPTYLINE [Concomitant]
  5. CHLORZOXAZONE [Concomitant]
  6. LIPITOR [Concomitant]

REACTIONS (7)
  - ABDOMINAL DISTENSION [None]
  - ABDOMINAL PAIN UPPER [None]
  - BACK PAIN [None]
  - CHEST DISCOMFORT [None]
  - CHEST PAIN [None]
  - FALL [None]
  - SKIN DISCOLOURATION [None]
